FAERS Safety Report 11250151 (Version 1)
Quarter: 2015Q3

REPORT INFORMATION
  Report Type: Spontaneous
  Country: US (occurrence: US)
  Receive Date: 20150708
  Receipt Date: 20150708
  Transmission Date: 20151125
  Serious: Yes (Other)
  Sender: FDA-Public Use
  Company Number: US-ELI_LILLY_AND_COMPANY-US200702004074

PATIENT
  Age: 46 Year
  Sex: Male

DRUGS (1)
  1. XIGRIS [Suspect]
     Active Substance: DROTRECOGIN ALFA (ACTIVATED)
     Indication: SEPSIS
     Dosage: 21.88 ML, OTHER
     Route: 042
     Dates: start: 20070203, end: 20070207

REACTIONS (4)
  - Haematoma [Unknown]
  - Mass [Unknown]
  - Peritoneal haemorrhage [Recovered/Resolved]
  - Abdominal distension [Unknown]

NARRATIVE: CASE EVENT DATE: 20070207
